FAERS Safety Report 20872244 (Version 1)
Quarter: 2022Q2

REPORT INFORMATION
  Report Type: Report from Study
  Country: CA (occurrence: CA)
  Receive Date: 20220525
  Receipt Date: 20220525
  Transmission Date: 20220721
  Serious: Yes (Other)
  Sender: FDA-Public Use
  Company Number: None

PATIENT
  Age: 67 Year
  Sex: Female
  Weight: 77 kg

DRUGS (21)
  1. METHOTREXATE [Suspect]
     Active Substance: METHOTREXATE
     Indication: Product used for unknown indication
     Route: 065
  2. PREDNISONE [Suspect]
     Active Substance: PREDNISONE
     Indication: Product used for unknown indication
     Route: 065
  3. RITUXIMAB [Suspect]
     Active Substance: RITUXIMAB
     Indication: Dermatomyositis
     Route: 065
  4. ACETAMINOPHEN [Concomitant]
     Active Substance: ACETAMINOPHEN
     Indication: Premedication
     Route: 048
  5. ALLOPURINOL [Concomitant]
     Active Substance: ALLOPURINOL
  6. BISOPROLOL [Concomitant]
     Active Substance: BISOPROLOL
  7. CLONIDINE [Concomitant]
     Active Substance: CLONIDINE
  8. TOCOPHEROL [Concomitant]
     Active Substance: TOCOPHEROL
  9. DIHYDROERGOTAMINE MESYLATE [Concomitant]
     Active Substance: DIHYDROERGOTAMINE MESYLATE
  10. DILAUDID [Concomitant]
     Active Substance: HYDROMORPHONE HYDROCHLORIDE
  11. DIPHENHYDRAMINE HYDROCHLORIDE [Concomitant]
     Active Substance: DIPHENHYDRAMINE HYDROCHLORIDE
     Indication: Premedication
     Route: 048
  12. FOLIC ACID [Concomitant]
     Active Substance: FOLIC ACID
  13. FUROSEMIDE [Concomitant]
     Active Substance: FUROSEMIDE
  14. GRAVOL [Concomitant]
     Active Substance: DIMENHYDRINATE
     Indication: Premedication
     Route: 048
  15. HYDROXYCHLOROQUINE SULFATE [Concomitant]
     Active Substance: HYDROXYCHLOROQUINE SULFATE
  16. LANSOPRAZOLE [Concomitant]
     Active Substance: LANSOPRAZOLE
  17. LISINOPRIL [Concomitant]
     Active Substance: LISINOPRIL
  18. METHYLPREDNISOLONE [Concomitant]
     Active Substance: METHYLPREDNISOLONE
     Indication: Premedication
     Route: 042
  19. NAPROXEN SODIUM [Concomitant]
     Active Substance: NAPROXEN SODIUM
  20. PLAQUENIL [Concomitant]
     Active Substance: HYDROXYCHLOROQUINE SULFATE
  21. SPIRONOLACTONE [Concomitant]
     Active Substance: SPIRONOLACTONE

REACTIONS (9)
  - Dysphagia [Not Recovered/Not Resolved]
  - Dyspnoea [Not Recovered/Not Resolved]
  - Fall [Unknown]
  - Nausea [Not Recovered/Not Resolved]
  - Pain of skin [Not Recovered/Not Resolved]
  - Respiratory distress [Not Recovered/Not Resolved]
  - Skin disorder [Not Recovered/Not Resolved]
  - Skin laceration [Not Recovered/Not Resolved]
  - Speech disorder [Not Recovered/Not Resolved]
